FAERS Safety Report 15396301 (Version 3)
Quarter: 2018Q4

REPORT INFORMATION
  Report Type: Spontaneous
  Country: US (occurrence: US)
  Receive Date: 20180918
  Receipt Date: 20181016
  Transmission Date: 20190204
  Serious: Yes (Hospitalization, Other)
  Sender: FDA-Public Use
  Company Number: US-LEXICON PHARMACEUTICALS, INC-18-1606-01124

PATIENT
  Age: 59 Year
  Sex: Female

DRUGS (29)
  1. TELOTRISTAT ETHYL [Suspect]
     Active Substance: TELOTRISTAT ETHYL
     Indication: NEUROENDOCRINE TUMOUR
     Route: 048
     Dates: start: 20180630
  2. FLORINEF ACETATE [Concomitant]
     Active Substance: FLUDROCORTISONE ACETATE
  3. LANTUS [Concomitant]
     Active Substance: INSULIN GLARGINE
  4. PANCRELIPASE. [Concomitant]
     Active Substance: PANCRELIPASE
  5. VITAMIN C [Concomitant]
     Active Substance: ASCORBIC ACID
  6. POTASSIUM ACETATE. [Concomitant]
     Active Substance: POTASSIUM ACETATE
  7. NEURONTIN [Concomitant]
     Active Substance: GABAPENTIN
  8. VITAMIN B [Concomitant]
     Active Substance: VITAMIN B
  9. SIMVASTATIN. [Concomitant]
     Active Substance: SIMVASTATIN
  10. ENDOCET [Concomitant]
     Active Substance: ACETAMINOPHEN\OXYCODONE HYDROCHLORIDE
  11. MAGNESIUM [Concomitant]
     Active Substance: MAGNESIUM
  12. ALBUTEROL. [Concomitant]
     Active Substance: ALBUTEROL
  13. DHEA [Concomitant]
     Active Substance: PRASTERONE
  14. HYDROCORTISONE. [Concomitant]
     Active Substance: HYDROCORTISONE
  15. MELATONIN [Concomitant]
     Active Substance: MELATONIN
  16. LASIX [Concomitant]
     Active Substance: FUROSEMIDE
  17. SCOPOLAMINE PATCH [Concomitant]
     Active Substance: SCOPOLAMINE
  18. BENADRYL [Concomitant]
     Active Substance: DIPHENHYDRAMINE HYDROCHLORIDE
  19. BENTYL [Concomitant]
     Active Substance: DICYCLOMINE HYDROCHLORIDE
  20. OXYCODONE [Concomitant]
     Active Substance: OXYCODONE
  21. FLUDROCORTISONE [Concomitant]
     Active Substance: FLUDROCORTISONE
  22. MORPHINE SULFATE. [Concomitant]
     Active Substance: MORPHINE SULFATE
  23. COQ10 [Concomitant]
     Active Substance: UBIDECARENONE
  24. INDERAL [Concomitant]
     Active Substance: PROPRANOLOL HYDROCHLORIDE
  25. SANDOSTATIN [Concomitant]
     Active Substance: OCTREOTIDE ACETATE
  26. PREVACID [Concomitant]
     Active Substance: LANSOPRAZOLE
     Indication: GASTROOESOPHAGEAL REFLUX DISEASE
  27. BUSPAR [Concomitant]
     Active Substance: BUSPIRONE HYDROCHLORIDE
  28. ARMOUR THYROID [Concomitant]
     Active Substance: THYROID, PORCINE
  29. ALDACTONE [Concomitant]
     Active Substance: SPIRONOLACTONE

REACTIONS (9)
  - Abdominal pain upper [Unknown]
  - White blood cell count increased [Unknown]
  - Clostridium difficile infection [Unknown]
  - Dehydration [Recovered/Resolved]
  - Diarrhoea [Recovered/Resolved]
  - Loss of consciousness [Recovered/Resolved]
  - Diarrhoea [Recovered/Resolved]
  - Pyrexia [Recovered/Resolved]
  - Dehydration [Recovered/Resolved]

NARRATIVE: CASE EVENT DATE: 2018
